FAERS Safety Report 9195870 (Version 2)
Quarter: 2013Q2

REPORT INFORMATION
  Report Type: Spontaneous
  Country: US (occurrence: None)
  Receive Date: 20120703
  Receipt Date: 20130107
  Transmission Date: 20140414
  Serious: Yes (Other)
  Sender: FDA-Public Use
  Company Number: PHEH2012US008534

PATIENT
  Age: 46 Year
  Sex: Female
  Weight: 43.1 kg

DRUGS (1)
  1. GILENYA [Suspect]
     Indication: MULTIPLE SCLEROSIS
     Route: 048
     Dates: start: 20101215

REACTIONS (4)
  - White blood cell count decreased [None]
  - Neutropenia [None]
  - Lymphopenia [None]
  - Inappropriate schedule of drug administration [None]
